FAERS Safety Report 13127660 (Version 2)
Quarter: 2017Q1

REPORT INFORMATION
  Report Type: Spontaneous
  Country: PE (occurrence: PE)
  Receive Date: 20170118
  Receipt Date: 20170120
  Transmission Date: 20170428
  Serious: Yes (Hospitalization)
  Sender: FDA-Public Use
  Company Number: PHHY2017PE005607

PATIENT
  Age: 30 Year
  Sex: Male

DRUGS (1)
  1. CARBAMAZEPINE. [Suspect]
     Active Substance: CARBAMAZEPINE
     Indication: SIMPLE PARTIAL SEIZURES
     Dosage: 200 MG, Q8H
     Route: 065

REACTIONS (3)
  - Hemiparesis [Unknown]
  - Seizure [Recovered/Resolved]
  - Headache [Unknown]
